FAERS Safety Report 22068260 (Version 1)
Quarter: 2023Q1

REPORT INFORMATION
  Report Type: Report from Study
  Country: US (occurrence: US)
  Receive Date: 20230307
  Receipt Date: 20230307
  Transmission Date: 20230417
  Serious: Yes (Life-Threatening, Hospitalization, Other)
  Sender: FDA-Public Use
  Company Number: US-ABBVIE-4141435

PATIENT
  Age: 68 Year
  Sex: Female
  Weight: 85.5 kg

DRUGS (2)
  1. IBRUTINIB [Suspect]
     Active Substance: IBRUTINIB
     Indication: Chronic lymphocytic leukaemia
     Route: 048
     Dates: end: 20220917
  2. VENETOCLAX [Suspect]
     Active Substance: VENETOCLAX
     Indication: Chronic lymphocytic leukaemia
     Dosage: CYCLES 1-14
     Route: 048
     Dates: start: 2021

REACTIONS (1)
  - Meningitis [Not Recovered/Not Resolved]

NARRATIVE: CASE EVENT DATE: 20220921
